FAERS Safety Report 23893195 (Version 1)
Quarter: 2024Q2

REPORT INFORMATION
  Report Type: Spontaneous
  Country: US (occurrence: US)
  Receive Date: 20240524
  Receipt Date: 20240524
  Transmission Date: 20240716
  Serious: No
  Sender: FDA-Public Use
  Company Number: US-CATALYST PHARMACEUTICALS-US-CATA-24-00286

PATIENT
  Age: 37 Year
  Sex: Male
  Weight: 46.712 kg

DRUGS (2)
  1. AGAMREE [Suspect]
     Active Substance: VAMOROLONE
     Indication: Becker^s muscular dystrophy
     Dosage: 7 ML DAILY
     Route: 048
     Dates: start: 20240403
  2. MEN^S MULTIVITAMIN [Concomitant]
     Indication: Hypovitaminosis
     Dosage: UNK, ONCE A DAY
     Route: 065

REACTIONS (3)
  - Energy increased [Not Recovered/Not Resolved]
  - Increased appetite [Not Recovered/Not Resolved]
  - Off label use [Not Recovered/Not Resolved]

NARRATIVE: CASE EVENT DATE: 20240403
